FAERS Safety Report 5100818-6 (Version None)
Quarter: 2006Q3

REPORT INFORMATION
  Report Type: 
  Country: None (occurrence: None)
  Receive Date: 20060906
  Receipt Date: 20060823
  Transmission Date: 20061208
  Serious: Yes (Hospitalization)
  Sender: FDA-Public Use
  Company Number: 2006_000023

PATIENT
  Age: 57 Year
  Sex: Male
  Weight: 90 kg

DRUGS (13)
  1. DEPOCYT [Suspect]
     Indication: CENTRAL NERVOUS SYSTEM LYMPHOMA
     Dosage: 50 MG;QM;INTH
     Route: 037
     Dates: start: 20060426, end: 20060614
  2. CYCLOPHOSPHAMIDE [Concomitant]
  3. PREDNISOLONE [Concomitant]
  4. DEXAMETHASONE TAB [Concomitant]
  5. VINCRISTINE [Concomitant]
  6. IMATINIB [Concomitant]
  7. ARA-C [Concomitant]
  8. METHOTREXATE [Concomitant]
  9. IMATINIB [Concomitant]
  10. MERCAPTOPURINE [Concomitant]
  11. INSULIN [Concomitant]
  12. ROCEPHIN [Concomitant]
  13. AMIKIN [Concomitant]

REACTIONS (9)
  - BLOOD CULTURE POSITIVE [None]
  - CATHETER RELATED INFECTION [None]
  - CHILLS [None]
  - ECZEMA [None]
  - ESCHERICHIA INFECTION [None]
  - SKIN INFLAMMATION [None]
  - STAPHYLOCOCCAL BACTERAEMIA [None]
  - STAPHYLOCOCCAL INFECTION [None]
  - VERTIGO [None]
